FAERS Safety Report 16657345 (Version 1)
Quarter: 2019Q3

REPORT INFORMATION
  Report Type: Spontaneous
  Country: FR (occurrence: FR)
  Receive Date: 20190801
  Receipt Date: 20190801
  Transmission Date: 20191004
  Serious: Yes (Life-Threatening, Hospitalization, Other)
  Sender: FDA-Public Use
  Company Number: FR-MYLANLABS-2019M1072019

PATIENT
  Age: 79 Year
  Sex: Female
  Weight: 65 kg

DRUGS (4)
  1. FENTANYL. [Suspect]
     Active Substance: FENTANYL
     Dosage: 37.5 MILLIGRAM, QD
     Route: 058
     Dates: start: 200909, end: 20090928
  2. FENTANYL. [Suspect]
     Active Substance: FENTANYL
     Indication: PAIN
     Dosage: 25 MILLIGRAM, QD
     Route: 058
     Dates: start: 20090913, end: 200909
  3. LYRICA [Suspect]
     Active Substance: PREGABALIN
     Indication: PAIN
     Dosage: 75 MILLIGRAM, QD
     Route: 048
     Dates: start: 20090923, end: 20091009
  4. REVLIMID [Concomitant]
     Active Substance: LENALIDOMIDE
     Indication: PLASMA CELL MYELOMA
     Dosage: 10 MG, ALTERNATE DAY
     Route: 048
     Dates: start: 20090527, end: 20091008

REACTIONS (2)
  - Tremor [Recovering/Resolving]
  - Myoclonus [Recovering/Resolving]

NARRATIVE: CASE EVENT DATE: 200909
